FAERS Safety Report 10234684 (Version 2)
Quarter: 2014Q2

REPORT INFORMATION
  Report Type: Report from Study
  Country: GB (occurrence: GB)
  Receive Date: 20140613
  Receipt Date: 20140613
  Transmission Date: 20141212
  Serious: Yes (Hospitalization)
  Sender: FDA-Public Use
  Company Number: GB-ROCHE-785590

PATIENT
  Age: 58 Year
  Sex: Female
  Weight: 66.75 kg

DRUGS (10)
  1. NAPROXEN [Concomitant]
     Route: 065
     Dates: start: 201001
  2. THYROXINE [Concomitant]
     Route: 065
  3. LACTULOSE [Concomitant]
     Route: 065
     Dates: start: 20110427
  4. TRAMADOL [Concomitant]
     Route: 065
     Dates: start: 1986
  5. FOLIC ACID [Concomitant]
     Route: 065
     Dates: start: 20110416
  6. OMEPRAZOLE [Concomitant]
     Route: 065
     Dates: start: 201101
  7. OMEPRAZOLE [Concomitant]
     Route: 065
     Dates: start: 20120702
  8. VENTOLIN [Concomitant]
     Dosage: TDD: 2 PUFFS
     Route: 065
     Dates: start: 2009
  9. TOCILIZUMAB [Suspect]
     Indication: RHEUMATOID ARTHRITIS
     Route: 042
  10. METHOTREXATE [Suspect]
     Indication: RHEUMATOID ARTHRITIS
     Route: 048

REACTIONS (2)
  - Cholelithiasis [Recovered/Resolved]
  - Dyspnoea [Recovered/Resolved]
